FAERS Safety Report 9136996 (Version 1)
Quarter: 2013Q1

REPORT INFORMATION
  Report Type: Spontaneous
  Country: ES (occurrence: ZA)
  Receive Date: 20130304
  Receipt Date: 20130304
  Transmission Date: 20140127
  Serious: Yes (Hospitalization, Other)
  Sender: FDA-Public Use
  Company Number: ZA-PFIZER INC-2013069324

PATIENT
  Age: 34 Year
  Sex: Male

DRUGS (3)
  1. PHENYTOIN [Suspect]
     Indication: GRAND MAL CONVULSION
     Dosage: 300 MG, 1X/DAY
  2. PHENYTOIN [Suspect]
     Dosage: 200 MG, 1X/DAY
  3. FOLIC ACID [Concomitant]
     Dosage: 5 MG, 1X/DAY

REACTIONS (4)
  - Ophthalmoplegia [Recovered/Resolved]
  - Hypotonia [Recovered/Resolved]
  - Asterixis [Recovered/Resolved]
  - Somnolence [Recovered/Resolved]
